FAERS Safety Report 7765451-6 (Version None)
Quarter: 2011Q3

REPORT INFORMATION
  Report Type: 
  Country: None (occurrence: None)
  Receive Date: 20110921
  Receipt Date: 20110912
  Transmission Date: 20111222
  Serious: Yes (Hospitalization)
  Sender: FDA-Public Use
  Company Number: CA-ASTRAZENECA-2011SE38492

PATIENT
  Age: 25678 Day
  Sex: Male

DRUGS (9)
  1. COD LIVER OIL [Concomitant]
     Indication: SUPPLEMENTATION THERAPY
     Route: 048
  2. STUDY PROCEDURE [Suspect]
     Indication: CORONARY ARTERY DISEASE
     Route: 065
  3. ASPIRIN [Concomitant]
     Route: 048
  4. ATORVASTATIN [Concomitant]
     Indication: DYSLIPIDAEMIA
     Route: 048
  5. ASCORBIC ACID [Concomitant]
     Indication: VITAMIN SUPPLEMENTATION
     Route: 048
  6. AZD6140 [Suspect]
     Indication: CORONARY ARTERY DISEASE
     Route: 048
     Dates: start: 20110609, end: 20110609
  7. VITALUX [Concomitant]
     Indication: SUPPLEMENTATION THERAPY
     Route: 048
  8. RAMIPRIL [Concomitant]
     Indication: HYPERTENSION
     Route: 048
  9. VITAMIN E [Concomitant]
     Indication: VITAMIN SUPPLEMENTATION
     Route: 048

REACTIONS (2)
  - CATHETER SITE HAEMORRHAGE [None]
  - CARDIOMYOPATHY [None]
